FAERS Safety Report 8875432 (Version 1)
Quarter: 2012Q4

REPORT INFORMATION
  Report Type: 
  Country: US (occurrence: US)
  Receive Date: 20121029
  Receipt Date: 20121029
  Transmission Date: 20130627
  Serious: Yes (Death, Other)
  Sender: FDA-Public Use
  Company Number: US-PURDUE-USA-2012-0094838

PATIENT
  Age: 38 None
  Sex: Male

DRUGS (9)
  1. OXYCONTIN TABLETS [Suspect]
     Indication: BACK PAIN
     Dosage: 10 mg, UNK
     Route: 048
  2. ATIVAN [Suspect]
     Indication: ANXIETY
     Dosage: 1 mg, UNK
     Route: 048
     Dates: start: 20101018
  3. ENDOCET [Suspect]
     Indication: PRODUCT USED FOR UNKNOWN INDICATION
     Dosage: 10-325 mg, unknown
  4. ALCOHOL [Suspect]
     Indication: SUICIDE ATTEMPT
     Dosage: unknown
  5. UNSPECIFIED INGREDIENT [Suspect]
     Indication: SUICIDE ATTEMPT
  6. UNSPECIFIED INGREDIENT [Suspect]
     Indication: SUICIDE ATTEMPT
  7. UNSPECIFIED INGREDIENT [Suspect]
     Indication: SUICIDE ATTEMPT
  8. LYRICA [Concomitant]
     Indication: PRODUCT USED FOR UNKNOWN INDICATION
     Dosage: 75 mg, UNK
  9. CLONAZEPAM [Concomitant]
     Indication: PRODUCT USED FOR UNKNOWN INDICATION
     Dosage: 1 mg, UNK

REACTIONS (7)
  - Intentional overdose [Unknown]
  - Gun shot wound [Fatal]
  - Completed suicide [Fatal]
  - Suicidal ideation [Unknown]
  - Hallucination [Recovered/Resolved]
  - Abnormal behaviour [Unknown]
  - Depression [Unknown]
